FAERS Safety Report 22128912 (Version 1)
Quarter: 2023Q1

REPORT INFORMATION
  Report Type: Spontaneous
  Country: US (occurrence: US)
  Receive Date: 20230323
  Receipt Date: 20230323
  Transmission Date: 20230418
  Serious: No
  Sender: FDA-Public Use
  Company Number: None

PATIENT
  Sex: Female

DRUGS (10)
  1. RIFAMPIN [Suspect]
     Active Substance: RIFAMPIN
     Indication: Mycobacterium avium complex infection
     Route: 065
     Dates: start: 2022
  2. RIFAMPIN [Suspect]
     Active Substance: RIFAMPIN
     Indication: Infective pulmonary exacerbation of cystic fibrosis
  3. ETHAMBUTOL HYDROCHLORIDE [Suspect]
     Active Substance: ETHAMBUTOL HYDROCHLORIDE
     Indication: Mycobacterium avium complex infection
     Route: 065
     Dates: start: 2022
  4. ETHAMBUTOL HYDROCHLORIDE [Suspect]
     Active Substance: ETHAMBUTOL HYDROCHLORIDE
     Indication: Infective pulmonary exacerbation of cystic fibrosis
  5. CLARITHROMYCIN [Concomitant]
     Active Substance: CLARITHROMYCIN
     Route: 065
     Dates: start: 2022
  6. CLARITHROMYCIN [Concomitant]
     Active Substance: CLARITHROMYCIN
  7. AMIKACIN [Concomitant]
     Active Substance: AMIKACIN
     Route: 065
     Dates: start: 2022
  8. AMIKACIN [Concomitant]
     Active Substance: AMIKACIN
  9. CLOFAZIMINE [Concomitant]
     Active Substance: CLOFAZIMINE
     Route: 065
     Dates: start: 2022
  10. CLOFAZIMINE [Concomitant]
     Active Substance: CLOFAZIMINE

REACTIONS (1)
  - Product use in unapproved indication [Unknown]
